FAERS Safety Report 6083175-0 (Version None)
Quarter: 2009Q1

REPORT INFORMATION
  Report Type: 
  Country: None (occurrence: None)
  Receive Date: 20090213
  Receipt Date: 20090213
  Transmission Date: 20090719
  Serious: Yes (Other)
  Sender: FDA-Public Use
  Company Number: None

PATIENT
  Sex: Female
  Weight: 54.4316 kg

DRUGS (1)
  1. HYDROCORTISONE [Suspect]
     Indication: ADRENAL INSUFFICIENCY
     Dosage: 10MG TID PO
     Route: 048
     Dates: start: 20070118, end: 20070223

REACTIONS (1)
  - WEIGHT INCREASED [None]
